FAERS Safety Report 8537408-9 (Version None)
Quarter: 2012Q3

REPORT INFORMATION
  Report Type: 
  Country: None (occurrence: None)
  Receive Date: 20120725
  Receipt Date: 20120720
  Transmission Date: 20120928
  Serious: Yes (Life-Threatening, Hospitalization)
  Sender: FDA-Public Use
  Company Number: GB-CELGENEUS-167-C4047-12070808

PATIENT
  Sex: Female
  Weight: 71.8 kg

DRUGS (40)
  1. DEXAMETHASONE [Suspect]
     Dosage: 40 MILLIGRAM
     Route: 065
     Dates: end: 20120709
  2. ZOMETA [Concomitant]
     Route: 041
     Dates: start: 20120707, end: 20120707
  3. METATONE [Concomitant]
     Dosage: 1 DOSAGE FORMS
     Route: 065
     Dates: start: 20120603
  4. NURIEK HONEY / GLYCERIN [Concomitant]
     Dosage: 2 DOSAGE FORMS
     Route: 065
     Dates: start: 20120602
  5. ALBUTEROL SULATE [Concomitant]
     Dosage: 10 MILLIGRAM
     Route: 065
     Dates: start: 20120712, end: 20120712
  6. SANBO [Concomitant]
     Dosage: 6 TABLET
     Route: 065
     Dates: start: 20120713, end: 20120716
  7. DEXAMETHASONE [Suspect]
     Indication: MULTIPLE MYELOMA
     Dosage: 40 MILLIGRAM
     Route: 065
     Dates: start: 20120516
  8. BETAHISTINE [Concomitant]
     Dosage: 48 MILLIGRAM
     Route: 065
     Dates: start: 20120525
  9. RED BLOOD CELLS [Concomitant]
     Route: 041
     Dates: start: 20120606, end: 20120606
  10. RED BLOOD CELLS [Concomitant]
     Dosage: 1 DOSAGE FORMS
     Route: 041
     Dates: start: 20120706, end: 20120707
  11. METRONIDAZOLE [Concomitant]
     Dosage: 1500 MILLIGRAM
     Route: 041
     Dates: start: 20120708, end: 20120712
  12. SALINE [Concomitant]
     Dosage: 4 DOSAGE FORMS
     Route: 065
     Dates: start: 20120712, end: 20120712
  13. DEXAMETHASONE [Suspect]
     Dosage: 40 MILLIGRAM
     Route: 065
     Dates: start: 20120711, end: 20120713
  14. THALIDOMIDE [Suspect]
     Indication: MULTIPLE MYELOMA
     Route: 048
     Dates: start: 20120710, end: 20120715
  15. PREGABALIN [Concomitant]
     Dosage: 150 MILLIGRAM
     Route: 065
     Dates: start: 20120525
  16. CIPROFLOXACIN [Concomitant]
     Indication: INFECTION PROPHYLAXIS
     Dosage: 1500 MILLIGRAM
     Route: 065
     Dates: start: 20120628
  17. RED BLOOD CELLS [Concomitant]
     Route: 041
     Dates: start: 20120713, end: 20120713
  18. PROPRANALOC [Concomitant]
     Indication: ANXIETY
     Dosage: 20 MILLIGRAM
     Route: 065
     Dates: start: 20050701
  19. TEICOPLANIN [Concomitant]
     Dosage: 800 MILLIGRAM
     Route: 041
     Dates: start: 20120710, end: 20120716
  20. SALINE [Concomitant]
     Dosage: 100
     Route: 065
     Dates: start: 20120707, end: 20120707
  21. SALINE [Concomitant]
     Dosage: 4 DOSAGE FORMS
     Route: 065
     Dates: start: 20120712, end: 20120712
  22. CHLORPHENIRAMINE MALEATE [Concomitant]
     Route: 061
     Dates: start: 20120605
  23. RED BLOOD CELLS [Concomitant]
     Route: 041
     Dates: start: 20120615, end: 20120615
  24. SODIUM CHLORIDE [Concomitant]
     Dosage: 3 DOSAGE FORMS
     Route: 041
     Dates: start: 20120707, end: 20120708
  25. CODEINE SULFATE [Concomitant]
     Route: 048
     Dates: start: 20120707
  26. ALLOPURINOL [Concomitant]
     Dosage: 300 MILLIGRAM
     Route: 065
     Dates: start: 20120605
  27. FLUTICASONE PROPIONATE [Concomitant]
     Route: 065
     Dates: start: 20120622
  28. RED BLOOD CELLS [Concomitant]
     Dosage: 1 DOSAGE FORMS
     Route: 041
     Dates: start: 20120707, end: 20120707
  29. PLATELETS [Concomitant]
     Route: 065
     Dates: start: 20120705, end: 20120705
  30. DEXAMETHASONE [Suspect]
     Dosage: 40 MILLIGRAM
     Route: 065
     Dates: start: 20120613, end: 20120622
  31. ZOMETA [Concomitant]
     Indication: PROPHYLAXIS
     Route: 065
     Dates: start: 20120516
  32. RED BLOOD CELLS [Concomitant]
     Route: 041
     Dates: start: 20120629, end: 20120629
  33. POTASSIUM CHLORIDE [Concomitant]
     Route: 041
     Dates: start: 20120701, end: 20120712
  34. PENICILLIN G POTASSIUM [Concomitant]
     Indication: PNEUMONIA
     Dosage: 4.8 GRAM
     Route: 065
     Dates: start: 20120522
  35. SALINE [Concomitant]
     Route: 041
     Dates: start: 20120709, end: 20120712
  36. PROPRANOLOL [Concomitant]
     Indication: ANXIETY
     Dosage: 20 MILLIGRAM
     Route: 065
     Dates: start: 20090701
  37. LANSOPRAZOLE [Concomitant]
     Dosage: 30 MILLIGRAM
     Route: 065
     Dates: start: 20080101
  38. ACTIMEL [Concomitant]
     Dosage: 1 DOSAGE FORMS
     Route: 065
     Dates: start: 20120603
  39. RED BLOOD CELLS [Concomitant]
     Route: 041
     Dates: start: 20120630, end: 20120630
  40. PIPERACILLIN AND TAZOBACTAM [Concomitant]
     Dosage: 18 MILLIGRAM
     Route: 041
     Dates: start: 20120709, end: 20120716

REACTIONS (4)
  - CARDIAC FAILURE [None]
  - HYPERCALCAEMIA [None]
  - HYPERVISCOSITY SYNDROME [None]
  - PULMONARY OEDEMA [None]
